FAERS Safety Report 5502542-4 (Version None)
Quarter: 2007Q4

REPORT INFORMATION
  Report Type: 
  Country: None (occurrence: None)
  Receive Date: 20071030
  Receipt Date: 20071026
  Transmission Date: 20080405
  Serious: No
  Sender: FDA-Public Use
  Company Number: US-BOEHRINGER INGELHEIM PHARMACEUTICALS, INC.-2006-BP-06273BP

PATIENT
  Sex: Male

DRUGS (78)
  1. MIRAPEX [Suspect]
     Indication: RESTLESS LEGS SYNDROME
     Route: 048
     Dates: start: 19990301, end: 20050715
  2. REQUIP [Concomitant]
     Indication: RESTLESS LEGS SYNDROME
     Route: 048
     Dates: start: 20050615, end: 20050825
  3. PROZAC [Concomitant]
     Dates: start: 20020202
  4. PAXIL [Concomitant]
     Indication: DEPRESSION
     Dates: end: 20020910
  5. ALLEGRA [Concomitant]
  6. PERCOCET [Concomitant]
  7. NIASPAN [Concomitant]
     Dates: start: 20020328
  8. K-DUR 10 [Concomitant]
     Route: 048
  9. HYZAAR [Concomitant]
  10. NEXIUM [Concomitant]
     Indication: GASTROOESOPHAGEAL REFLUX DISEASE
     Dates: start: 20020101
  11. FOLATE [Concomitant]
     Indication: BLOOD HOMOCYSTEINE INCREASED
     Dates: start: 20020626
  12. PRAVACHOL [Concomitant]
     Dates: start: 20020620
  13. ASCORBIC ACID [Concomitant]
  14. VITAMIN E [Concomitant]
  15. ASPIRIN [Concomitant]
  16. SERZONE [Concomitant]
     Indication: DEPRESSION
     Dates: start: 20020901, end: 20050715
  17. HYDROCHLOROTHIAZIDE [Concomitant]
     Indication: HYPERTENSION
     Dates: start: 20031104
  18. KLONOPIN [Concomitant]
     Indication: RESTLESS LEGS SYNDROME
     Route: 048
     Dates: start: 20040414, end: 20050825
  19. MOBIC [Concomitant]
     Indication: PLANTAR FASCIITIS
     Dates: start: 20040224
  20. TESTOSTERONE [Concomitant]
     Indication: BLOOD TESTOSTERONE DECREASED
     Route: 030
  21. LASIX [Concomitant]
     Dates: start: 20040828
  22. GLUCOPHAGE [Concomitant]
     Indication: DIABETES MELLITUS
     Dates: start: 20040617, end: 20040826
  23. SYNTHROID [Concomitant]
  24. PLAVIX [Concomitant]
     Dates: start: 20050418
  25. ZOCOR [Concomitant]
     Dates: end: 20050601
  26. VYTORIN [Concomitant]
     Dates: start: 20050601, end: 20060516
  27. TOPROL-XL [Concomitant]
     Dates: start: 20060516
  28. ZETIA [Concomitant]
     Dates: start: 20061016
  29. FISH OIL [Concomitant]
     Dates: start: 20061114
  30. CLOMIPRAMINE HCL [Concomitant]
     Indication: RESTLESS LEGS SYNDROME
     Dates: start: 20050715, end: 20050831
  31. NEURONTIN [Concomitant]
     Dates: start: 20050728
  32. LUNESTA [Concomitant]
     Route: 048
     Dates: start: 20050831
  33. WELCHOL [Concomitant]
     Route: 048
     Dates: start: 20050901
  34. COUMADIN [Concomitant]
     Dates: end: 20050101
  35. EFFEXOR XR [Concomitant]
     Indication: DEPRESSION
     Route: 048
     Dates: start: 20060220
  36. LIPITOR [Concomitant]
     Indication: BLOOD CHOLESTEROL INCREASED
     Dates: start: 20000710, end: 20020122
  37. VALTREX [Concomitant]
  38. ULTRAM [Concomitant]
  39. PREVACID [Concomitant]
  40. FIORICET [Concomitant]
  41. ZESTRIL [Concomitant]
     Dates: start: 20020101
  42. ALTACE [Concomitant]
  43. BUMETANIDE [Concomitant]
  44. HEMORRHOIDAL-HC [Concomitant]
     Dates: start: 20030101
  45. LESCOL XL [Concomitant]
     Dates: start: 20040101
  46. DEPO-TESTOSTERONE [Concomitant]
     Route: 030
     Dates: start: 20040101
  47. CLOTRIMAZOL/BETAMETHASONE [Concomitant]
  48. CLOMID [Concomitant]
  49. GARLIC [Concomitant]
  50. TYLENOL (CAPLET) [Concomitant]
  51. DITTMAN [Concomitant]
  52. IMITREX [Concomitant]
     Route: 045
  53. KLOR-CON [Concomitant]
  54. TIGAN [Concomitant]
  55. ZOFRAN [Concomitant]
     Dates: start: 20020127
  56. PRINIVIL [Concomitant]
     Dates: start: 20001102
  57. CDP/CLIDINIUM [Concomitant]
     Dates: start: 20020724
  58. ACETAMINOPHEN AND HYDROCODONE BITARTRATE [Concomitant]
  59. BUMETANIDE [Concomitant]
     Dates: start: 20021213
  60. HYDROMET [Concomitant]
     Dates: start: 20030217
  61. FLONASE [Concomitant]
     Dates: start: 20030217
  62. METRONIDAZOLE [Concomitant]
     Dates: start: 20030828
  63. VIAGRA [Concomitant]
  64. LIDOCAINE [Concomitant]
  65. HYDROCORTISONE [Concomitant]
  66. ANALPRAM-HC [Concomitant]
  67. BIAXIN XL [Concomitant]
  68. AMARYL [Concomitant]
     Dates: start: 20040828
  69. PREDNISONE [Concomitant]
     Dates: start: 20041230
  70. LAMISIL [Concomitant]
     Dates: start: 20050122
  71. BACTRIM DS [Concomitant]
     Dates: start: 20050222
  72. APAP W/ CODEINE [Concomitant]
     Dates: start: 20050728
  73. PERCOCET [Concomitant]
     Dates: start: 20050823
  74. IBUPROFEN [Concomitant]
     Dates: start: 20051018
  75. TESSALON [Concomitant]
     Route: 048
  76. DEPAKOTE [Concomitant]
     Indication: ARTHRALGIA
  77. ABILIFY [Concomitant]
     Route: 048
  78. CAFERGOT [Concomitant]
     Indication: HEADACHE

REACTIONS (6)
  - DEPRESSION [None]
  - EMOTIONAL DISTRESS [None]
  - HYPERSEXUALITY [None]
  - OBSESSIVE-COMPULSIVE PERSONALITY DISORDER [None]
  - PATHOLOGICAL GAMBLING [None]
  - SUICIDAL IDEATION [None]
